FAERS Safety Report 14156998 (Version 1)
Quarter: 2017Q4

REPORT INFORMATION
  Report Type: Spontaneous
  Country: US (occurrence: None)
  Receive Date: 20171103
  Receipt Date: 20171103
  Transmission Date: 20180321
  Serious: Yes (Disabling)
  Sender: FDA-Public Use
  Company Number: None

PATIENT
  Age: 32 Year
  Sex: Female
  Weight: 52.16 kg

DRUGS (2)
  1. PARAGARD T 380A [Suspect]
     Active Substance: COPPER
  2. PRE-NATAL VITAMINS [Concomitant]

REACTIONS (3)
  - Metrorrhagia [None]
  - Dysmenorrhoea [None]
  - Oligomenorrhoea [None]

NARRATIVE: CASE EVENT DATE: 20161101
